FAERS Safety Report 15144088 (Version 1)
Quarter: 2018Q3

REPORT INFORMATION
  Report Type: Spontaneous
  Country: TR (occurrence: TR)
  Receive Date: 20180713
  Receipt Date: 20180713
  Transmission Date: 20181010
  Serious: Yes (Death)
  Sender: FDA-Public Use
  Company Number: TR-MALLINCKRODT-T201802900

PATIENT

DRUGS (1)
  1. UVADEX [Suspect]
     Active Substance: METHOXSALEN
     Indication: GRAFT VERSUS HOST DISEASE
     Dosage: APPLIED ON 2 CONSECUTIVE DAYS EVERY 2?4 WEEKS
     Route: 057

REACTIONS (2)
  - Graft versus host disease [Fatal]
  - Product use in unapproved indication [Unknown]
